FAERS Safety Report 4467856-8 (Version None)
Quarter: 2004Q4

REPORT INFORMATION
  Report Type: 
  Country: None (occurrence: None)
  Receive Date: 20041004
  Receipt Date: 20041004
  Transmission Date: 20050328
  Serious: No
  Sender: FDA-Public Use
  Company Number: None

PATIENT
  Sex: Male
  Weight: 76 kg

DRUGS (4)
  1. PROTONIX [Suspect]
     Indication: DUODENAL ULCER HAEMORRHAGE
     Dosage: 8MG  PER HOUR  INTRAVENOUS
     Route: 042
     Dates: start: 20040303, end: 20040307
  2. LOPRESSOR [Concomitant]
  3. ZOCOR [Concomitant]
  4. SOTALOL HCL [Concomitant]

REACTIONS (3)
  - DYSPHONIA [None]
  - OEDEMA PERIPHERAL [None]
  - SWELLING FACE [None]
